FAERS Safety Report 25086188 (Version 1)
Quarter: 2025Q1

REPORT INFORMATION
  Report Type: Report from Study
  Country: US (occurrence: US)
  Receive Date: 20250317
  Receipt Date: 20250317
  Transmission Date: 20250409
  Serious: Yes (Hospitalization)
  Sender: UCB
  Company Number: US-UCBSA-2025014089

PATIENT
  Age: 1 Year
  Sex: Male

DRUGS (2)
  1. FINTEPLA [Suspect]
     Active Substance: FENFLURAMINE
     Indication: Lennox-Gastaut syndrome
     Dosage: 1 MILLILITER, 2X/DAY (BID)
     Route: 048
     Dates: start: 20250117
  2. FINTEPLA [Suspect]
     Active Substance: FENFLURAMINE
     Dosage: 1 MILLILITER, 2X/DAY (BID)
     Dates: start: 2025

REACTIONS (4)
  - Bronchiolitis [Not Recovered/Not Resolved]
  - Decreased appetite [Not Recovered/Not Resolved]
  - Enteral nutrition [Not Recovered/Not Resolved]
  - Off label use [Unknown]

NARRATIVE: CASE EVENT DATE: 20250117
